FAERS Safety Report 21529356 (Version 5)
Quarter: 2022Q4

REPORT INFORMATION
  Report Type: Report from Study
  Country: KR (occurrence: KR)
  Receive Date: 20221031
  Receipt Date: 20221215
  Transmission Date: 20230112
  Serious: Yes (Death, Hospitalization)
  Sender: FDA-Public Use
  Company Number: KR-GILEAD-2022-0602696

PATIENT
  Sex: Male
  Weight: 46.7 kg

DRUGS (62)
  1. SACITUZUMAB GOVITECAN [Suspect]
     Active Substance: SACITUZUMAB GOVITECAN
     Indication: Non-small cell lung cancer
     Dosage: 509 MG
     Route: 042
     Dates: start: 20220727, end: 20220727
  2. SACITUZUMAB GOVITECAN [Suspect]
     Active Substance: SACITUZUMAB GOVITECAN
     Dosage: 509 MG
     Route: 042
     Dates: start: 20220804, end: 20220804
  3. SACITUZUMAB GOVITECAN [Suspect]
     Active Substance: SACITUZUMAB GOVITECAN
     Dosage: 509 MG
     Route: 042
     Dates: start: 20220817, end: 20220817
  4. SACITUZUMAB GOVITECAN [Suspect]
     Active Substance: SACITUZUMAB GOVITECAN
     Dosage: 509 MG
     Route: 042
     Dates: start: 20220830, end: 20220830
  5. SACITUZUMAB GOVITECAN [Suspect]
     Active Substance: SACITUZUMAB GOVITECAN
     Dosage: 509 MG
     Route: 042
     Dates: start: 20220914, end: 20220914
  6. SACITUZUMAB GOVITECAN [Suspect]
     Active Substance: SACITUZUMAB GOVITECAN
     Dosage: 509 MG
     Route: 042
     Dates: start: 20220920, end: 20220920
  7. SACITUZUMAB GOVITECAN [Suspect]
     Active Substance: SACITUZUMAB GOVITECAN
     Dosage: 509 MG
     Route: 042
     Dates: start: 20221004, end: 20221004
  8. SACITUZUMAB GOVITECAN [Suspect]
     Active Substance: SACITUZUMAB GOVITECAN
     Dosage: 509 MG
     Route: 042
     Dates: start: 20221013, end: 20221013
  9. SACITUZUMAB GOVITECAN [Suspect]
     Active Substance: SACITUZUMAB GOVITECAN
     Dosage: 382 MG
     Route: 042
     Dates: start: 20221116, end: 20221116
  10. SACITUZUMAB GOVITECAN [Suspect]
     Active Substance: SACITUZUMAB GOVITECAN
     Dosage: 326 MG
     Route: 042
     Dates: start: 20221122, end: 20221122
  11. PEMBROLIZUMAB [Suspect]
     Active Substance: PEMBROLIZUMAB
     Indication: Non-small cell lung cancer
     Dosage: 200 MG
     Route: 042
     Dates: start: 20220727, end: 20220727
  12. PEMBROLIZUMAB [Suspect]
     Active Substance: PEMBROLIZUMAB
     Dosage: 200 MG
     Route: 042
     Dates: start: 20220817, end: 20220817
  13. PEMBROLIZUMAB [Suspect]
     Active Substance: PEMBROLIZUMAB
     Dosage: 200 MG
     Route: 042
     Dates: start: 20220914, end: 20220914
  14. PEMBROLIZUMAB [Suspect]
     Active Substance: PEMBROLIZUMAB
     Dosage: 200 MG
     Route: 042
     Dates: start: 20221004, end: 20221004
  15. PEMBROLIZUMAB [Suspect]
     Active Substance: PEMBROLIZUMAB
     Dosage: 200 MG
     Route: 042
     Dates: start: 20221116, end: 20221116
  16. CARBOPLATIN [Suspect]
     Active Substance: CARBOPLATIN
     Indication: Non-small cell lung cancer
     Dosage: 535 MG
     Route: 042
     Dates: start: 20220727, end: 20220727
  17. CARBOPLATIN [Suspect]
     Active Substance: CARBOPLATIN
     Dosage: 651 MG
     Route: 042
     Dates: start: 20220817, end: 20220817
  18. CARBOPLATIN [Suspect]
     Active Substance: CARBOPLATIN
     Dosage: 566 MG
     Route: 042
     Dates: start: 20220914, end: 20220914
  19. CARBOPLATIN [Suspect]
     Active Substance: CARBOPLATIN
     Dosage: 714 MG
     Route: 042
     Dates: start: 20221004, end: 20221004
  20. VEKLURY [Concomitant]
     Active Substance: REMDESIVIR
     Route: 042
     Dates: start: 20221124, end: 20221125
  21. DIABEX [Concomitant]
     Active Substance: METFORMIN HYDROCHLORIDE
     Indication: Diabetes mellitus
     Route: 048
     Dates: start: 20220628
  22. LEVODROPROPIZINE [Concomitant]
     Active Substance: LEVODROPROPIZINE
     Indication: Supplementation therapy
     Route: 048
     Dates: start: 20220629
  23. ACETYLCYSTEINE [Concomitant]
     Active Substance: ACETYLCYSTEINE
     Indication: Supplementation therapy
     Route: 048
     Dates: start: 20220701
  24. ZEMIGLO [Concomitant]
     Indication: Diabetes mellitus
     Route: 048
     Dates: start: 20220722
  25. MEGACE F [Concomitant]
     Indication: Supplementation therapy
     Route: 048
     Dates: start: 20220804
  26. GRASIN [Concomitant]
     Indication: Neutropenia
     Route: 030
     Dates: start: 20220927, end: 20220927
  27. GRASIN [Concomitant]
     Dosage: UNK
     Route: 030
     Dates: start: 20221012, end: 20221012
  28. GRASIN [Concomitant]
     Dosage: UNK
     Dates: start: 20221124, end: 20221125
  29. SINIL-M [Concomitant]
     Indication: Constipation
     Route: 048
     Dates: start: 20220817, end: 20220922
  30. NOVORAPID [Concomitant]
     Active Substance: INSULIN ASPART
     Indication: Diabetes mellitus
     Route: 058
     Dates: start: 20220819
  31. LAMINA-G [Concomitant]
     Indication: Prophylaxis
     Route: 048
     Dates: start: 20220626
  32. LANTUS [Concomitant]
     Active Substance: INSULIN GLARGINE
     Indication: Diabetes mellitus
     Route: 058
     Dates: start: 20220627
  33. LIPITOR [Concomitant]
     Active Substance: ATORVASTATIN CALCIUM
     Indication: Supplementation therapy
     Route: 048
     Dates: start: 20220628
  34. SODIUM CHLORIDE [Concomitant]
     Active Substance: SODIUM CHLORIDE
     Indication: Supplementation therapy
     Route: 042
     Dates: start: 20221025, end: 20221104
  35. KMOXILIN [AMOXICILLIN SODIUM;CLAVULANATE POTASSIUM] [Concomitant]
     Indication: Tonsillitis
     Dosage: UNK1.2 G
     Route: 042
     Dates: start: 20221025, end: 20221025
  36. PIPERACILLIN SODIUM\TAZOBACTAM SODIUM [Concomitant]
     Active Substance: PIPERACILLIN SODIUM\TAZOBACTAM SODIUM
     Indication: Tonsillitis
     Dosage: UNK
     Dates: start: 20221026, end: 20221101
  37. SULFAMETHOXAZOLE\TRIMETHOPRIM [Concomitant]
     Active Substance: SULFAMETHOXAZOLE\TRIMETHOPRIM
     Dosage: UNK
     Dates: start: 20221102, end: 20221108
  38. PHENIRAMINE [Concomitant]
     Active Substance: PHENIRAMINE
     Indication: Rhinorrhoea
     Route: 048
     Dates: start: 20220927
  39. PROFA [Concomitant]
     Indication: Supplementation therapy
     Route: 042
     Dates: start: 20221025, end: 20221025
  40. PROFA [Concomitant]
     Dosage: UNK
     Route: 042
     Dates: start: 20221124, end: 20221125
  41. FLOMOXEF SODIUM [Concomitant]
     Active Substance: FLOMOXEF SODIUM
     Indication: Tonsillitis
     Route: 042
     Dates: start: 20221026, end: 20221026
  42. FLAGYL [Concomitant]
     Active Substance: METRONIDAZOLE\METRONIDAZOLE HYDROCHLORIDE
     Indication: Tonsillitis
     Route: 042
     Dates: start: 20221026, end: 20221026
  43. DEXAMETHASONE [Concomitant]
     Active Substance: DEXAMETHASONE
     Indication: Tonsillitis
     Route: 048
     Dates: start: 20221026, end: 20221101
  44. AMINO ACIDS\DEXTROSE\ELECTROLYTES NOS\SOYBEAN OIL\VITAMINS [Concomitant]
     Active Substance: AMINO ACIDS\DEXTROSE\ELECTROLYTES NOS\SOYBEAN OIL\VITAMINS
     Indication: Asthenia
     Route: 042
     Dates: start: 20221026, end: 20221104
  45. PROPACETAMOL HYDROCHLORIDE [Concomitant]
     Active Substance: PROPACETAMOL HYDROCHLORIDE
     Indication: Tonsillitis
     Route: 042
     Dates: start: 20221026, end: 20221026
  46. PHOSTEN [Concomitant]
     Indication: Hypokalaemia
     Route: 042
     Dates: start: 20221027, end: 20221031
  47. POTASSIUM CHLORIDE [Concomitant]
     Active Substance: POTASSIUM CHLORIDE
     Indication: Hypokalaemia
     Route: 042
     Dates: start: 20221028, end: 20221028
  48. HEXOMEDINE [HEXAMIDINE ISETIONATE] [Concomitant]
     Indication: Tonsillitis
     Route: 048
     Dates: start: 20221102, end: 20221119
  49. HUMAN RED BLOOD CELL [Concomitant]
     Active Substance: HUMAN RED BLOOD CELL
     Indication: Anaemia
     Route: 042
     Dates: start: 20221027, end: 20221027
  50. HUMAN RED BLOOD CELL [Concomitant]
     Active Substance: HUMAN RED BLOOD CELL
     Dosage: UNK
     Route: 042
     Dates: start: 20221028, end: 20221028
  51. FRAVASOL [Concomitant]
     Indication: Asthenia
     Route: 042
     Dates: start: 20221122, end: 20221122
  52. DULCOLAX (BISACODYL) [Concomitant]
     Active Substance: BISACODYL
     Indication: Constipation
     Route: 054
     Dates: start: 20221122
  53. TYLENOL [Concomitant]
     Active Substance: ACETAMINOPHEN
     Route: 048
     Dates: start: 20221122
  54. VASOPRESSIN [Concomitant]
     Active Substance: VASOPRESSIN
     Dosage: UNK
     Dates: start: 20221124, end: 20221125
  55. EPINEPHRINE [Concomitant]
     Active Substance: EPINEPHRINE
     Dosage: UNK
     Dates: start: 20221124
  56. MAXIPIME [Concomitant]
     Active Substance: CEFEPIME HYDROCHLORIDE
     Indication: Pneumonia
     Route: 042
     Dates: start: 20221124, end: 20221124
  57. THIAMINE HYDROCHLORIDE [Concomitant]
     Active Substance: THIAMINE HYDROCHLORIDE
     Indication: Prophylaxis
     Route: 042
     Dates: start: 20221124, end: 20221124
  58. PANTOPRAZOLE SODIUM [Concomitant]
     Active Substance: PANTOPRAZOLE SODIUM
     Indication: Prophylaxis
     Route: 042
     Dates: start: 20221124, end: 20221124
  59. MIDAZOLAM [Concomitant]
     Active Substance: MIDAZOLAM
     Indication: Prophylaxis
     Route: 042
     Dates: start: 20221124, end: 20221124
  60. NORPIN [NOREPINEPHRINE] [Concomitant]
     Indication: Hypotension
     Route: 042
     Dates: start: 20221124, end: 20221125
  61. ROCURONIUM BROMIDE [Concomitant]
     Active Substance: ROCURONIUM BROMIDE
     Indication: Prophylaxis
     Route: 042
     Dates: start: 20221124, end: 20221124
  62. PRECEDEX [Concomitant]
     Active Substance: DEXMEDETOMIDINE HYDROCHLORIDE
     Indication: Prophylaxis
     Route: 042
     Dates: start: 20221124, end: 20221124

REACTIONS (3)
  - Tonsillitis [Recovered/Resolved]
  - Pneumonia [Not Recovered/Not Resolved]
  - Sepsis [Fatal]

NARRATIVE: CASE EVENT DATE: 20221025
